FAERS Safety Report 8000216-1 (Version None)
Quarter: 2011Q4

REPORT INFORMATION
  Report Type: 
  Country: None (occurrence: None)
  Receive Date: 20111220
  Receipt Date: 20111220
  Transmission Date: 20120403
  Serious: Yes (Other)
  Sender: FDA-Public Use
  Company Number: None

PATIENT
  Age: 11 Year
  Sex: Male
  Weight: 45 kg

DRUGS (1)
  1. LISTERINE AGENT COOL BLUE GLACIER MINT (ORAL CARE PRODUCTS) LIQUID [Suspect]
     Indication: PRODUCT USED FOR UNKNOWN INDICATION
     Dosage: , 2 IN 1 DAY, BUCCAL
     Route: 002
     Dates: start: 20111115, end: 20111117

REACTIONS (4)
  - PYREXIA [None]
  - APPLICATION SITE PAIN [None]
  - WOUND [None]
  - STOMATITIS [None]
